FAERS Safety Report 17031521 (Version 1)
Quarter: 2019Q4

REPORT INFORMATION
  Report Type: Spontaneous
  Country: US (occurrence: US)
  Receive Date: 20191113
  Receipt Date: 20191113
  Transmission Date: 20200122
  Serious: Yes (Disabling)
  Sender: FDA-Public Use
  Company Number: None

PATIENT
  Age: 43 Year
  Sex: Female
  Weight: 49.95 kg

DRUGS (9)
  1. CELLCEPT [Suspect]
     Active Substance: MYCOPHENOLATE MOFETIL\MYCOPHENOLATE MOFETIL HYDROCHLORIDE
     Indication: RENAL TRANSPLANT
     Route: 048
  2. CYCLOSPORINE. [Concomitant]
     Active Substance: CYCLOSPORINE
  3. LASIX [Concomitant]
     Active Substance: FUROSEMIDE
  4. VALSARTAN. [Concomitant]
     Active Substance: VALSARTAN
  5. PREDNISONE. [Concomitant]
     Active Substance: PREDNISONE
  6. IMURAN [Concomitant]
     Active Substance: AZATHIOPRINE
  7. VITAMIN C [Concomitant]
     Active Substance: ASCORBIC ACID
  8. SODIUM BICARBONATE. [Concomitant]
     Active Substance: SODIUM BICARBONATE
  9. 5HTP [Concomitant]

REACTIONS (35)
  - Crying [None]
  - Night sweats [None]
  - Abdominal pain upper [None]
  - Sensitive skin [None]
  - Anger [None]
  - Muscle tightness [None]
  - Abdominal distension [None]
  - Depression [None]
  - Feeling abnormal [None]
  - Agitation [None]
  - Social avoidant behaviour [None]
  - Swelling face [None]
  - Disturbance in attention [None]
  - Lethargy [None]
  - Panic attack [None]
  - Feeling of despair [None]
  - Respiration abnormal [None]
  - Hypertension [None]
  - Tearfulness [None]
  - Urinary retention [None]
  - Irritability [None]
  - Peripheral swelling [None]
  - Fluid retention [None]
  - Headache [None]
  - Insomnia [None]
  - Fatigue [None]
  - Increased appetite [None]
  - Anxiety [None]
  - Apathy [None]
  - Confusional state [None]
  - Hypoaesthesia [None]
  - Depressed mood [None]
  - Cognitive disorder [None]
  - Aphasia [None]
  - Tremor [None]

NARRATIVE: CASE EVENT DATE: 20190708
